FAERS Safety Report 13607798 (Version 4)
Quarter: 2017Q3

REPORT INFORMATION
  Report Type: Spontaneous
  Country: KR (occurrence: KR)
  Receive Date: 20170602
  Receipt Date: 20170801
  Transmission Date: 20171127
  Serious: Yes (Hospitalization, Other)
  Sender: FDA-Public Use
  Company Number: KR-009507513-1705KOR015885

PATIENT
  Age: 77 Year
  Sex: Male
  Weight: 59.1 kg

DRUGS (13)
  1. CISPLATIN. [Concomitant]
     Active Substance: CISPLATIN
     Indication: CHEMOTHERAPY
     Dosage: 94.2 MG, ONCE
     Route: 042
     Dates: start: 20170302, end: 20170302
  2. DEXAMETHASONE SODIUM PHOSPHATE. [Concomitant]
     Active Substance: DEXAMETHASONE SODIUM PHOSPHATE
     Indication: ANTIEMETIC SUPPORTIVE CARE
     Dosage: 10 MG, ONCE
     Route: 042
     Dates: start: 20170302, end: 20170302
  3. NASERON [Concomitant]
     Indication: ANTIEMETIC SUPPORTIVE CARE
     Dosage: 1 TABLET, BID
     Route: 048
     Dates: start: 20170302, end: 20170302
  4. PEMETREXED DISODIUM [Concomitant]
     Active Substance: PEMETREXED DISODIUM
     Indication: CHEMOTHERAPY
     Dosage: 785 MG, ONCE
     Route: 042
     Dates: start: 20170302, end: 20170302
  5. PEMETREXED DISODIUM [Concomitant]
     Active Substance: PEMETREXED DISODIUM
     Dosage: 785 MG, ONCE
     Route: 042
     Dates: start: 20170323, end: 20170323
  6. NASEA [Concomitant]
     Active Substance: RAMOSETRON HYDROCHLORIDE
     Indication: ANTIEMETIC SUPPORTIVE CARE
     Dosage: 0.3 MG, ONCE
     Route: 042
     Dates: start: 20170302, end: 20170302
  7. CISPLATIN. [Concomitant]
     Active Substance: CISPLATIN
     Dosage: 94.2 MG, ONCE
     Route: 042
     Dates: start: 20170323, end: 20170323
  8. DEXAMETHASONE SODIUM PHOSPHATE. [Concomitant]
     Active Substance: DEXAMETHASONE SODIUM PHOSPHATE
     Dosage: 10 MG, ONCE
     Route: 042
     Dates: start: 20170323, end: 20170323
  9. EMEND (FOSAPREPITANT DIMEGLUMINE) [Suspect]
     Active Substance: FOSAPREPITANT DIMEGLUMINE
     Indication: PROPHYLAXIS OF NAUSEA AND VOMITING
     Dosage: 150 MG, ONCE
     Route: 042
     Dates: start: 20170302, end: 20170302
  10. EMEND (FOSAPREPITANT DIMEGLUMINE) [Suspect]
     Active Substance: FOSAPREPITANT DIMEGLUMINE
     Dosage: 150 MG, ONCE
     Route: 042
     Dates: start: 20170323, end: 20170323
  11. ALOXI [Concomitant]
     Active Substance: PALONOSETRON HYDROCHLORIDE
     Indication: ANTIEMETIC SUPPORTIVE CARE
     Dosage: 0.25 MG, ONCE
     Route: 042
     Dates: start: 20170302, end: 20170302
  12. NASEA [Concomitant]
     Active Substance: RAMOSETRON HYDROCHLORIDE
     Dosage: 0.3 MG, ONCE
     Route: 042
     Dates: start: 20170323, end: 20170323
  13. NASERON [Concomitant]
     Dosage: 1 TABLET, BID
     Route: 048
     Dates: start: 20170323, end: 20170323

REACTIONS (5)
  - Pulmonary embolism [Recovered/Resolved]
  - Dizziness [Recovered/Resolved]
  - Neutropenia [Recovered/Resolved]
  - Pyrexia [Recovered/Resolved]
  - Decreased appetite [Recovered/Resolved]

NARRATIVE: CASE EVENT DATE: 20170309
